FAERS Safety Report 22533777 (Version 2)
Quarter: 2023Q2

REPORT INFORMATION
  Report Type: Spontaneous
  Country: US (occurrence: US)
  Receive Date: 20230608
  Receipt Date: 20230622
  Transmission Date: 20230721
  Serious: No
  Sender: FDA-Public Use
  Company Number: US-TOLMAR, INC.-23US041239

PATIENT
  Sex: Female

DRUGS (2)
  1. FENSOLVI [Suspect]
     Active Substance: LEUPROLIDE ACETATE
     Indication: Off label use
     Dosage: UNK
  2. DEVICE [Suspect]
     Active Substance: DEVICE
     Indication: Off label use
     Dosage: UNK

REACTIONS (1)
  - Off label use [Unknown]
